FAERS Safety Report 7058373-X (Version None)
Quarter: 2010Q4

REPORT INFORMATION
  Report Type: 
  Country: None (occurrence: None)
  Receive Date: 20101022
  Receipt Date: 20101018
  Transmission Date: 20110411
  Serious: No
  Sender: FDA-Public Use
  Company Number: US-PFIZER INC-2010094960

PATIENT
  Sex: Female
  Weight: 74.83 kg

DRUGS (3)
  1. XALATAN [Suspect]
     Indication: GLAUCOMA
     Dosage: 1 GTT, 8HRS IN EACH EYE
     Route: 031
     Dates: start: 20080101
  2. SYNTHROID [Concomitant]
     Indication: BLOOD GLUCOSE ABNORMAL
     Dosage: 25 MCG, UNK
  3. ACETYLSALICYLIC ACID [Concomitant]
     Dosage: UNK

REACTIONS (2)
  - EYE IRRITATION [None]
  - OCULAR HYPERAEMIA [None]
